FAERS Safety Report 20701242 (Version 5)
Quarter: 2023Q4

REPORT INFORMATION
  Report Type: Spontaneous
  Country: CA (occurrence: None)
  Receive Date: 20220412
  Receipt Date: 20231221
  Transmission Date: 20240110
  Serious: Yes (Hospitalization)
  Sender: FDA-Public Use
  Company Number: CA-ROCHE-3066199

PATIENT
  Age: 48 Year
  Sex: Female
  Weight: 106 kg

DRUGS (69)
  1. TRASTUZUMAB [Suspect]
     Active Substance: TRASTUZUMAB
     Indication: Tardive dyskinesia
     Route: 065
  2. TRASTUZUMAB [Suspect]
     Active Substance: TRASTUZUMAB
     Route: 065
  3. TRASTUZUMAB [Suspect]
     Active Substance: TRASTUZUMAB
  4. TRASTUZUMAB [Suspect]
     Active Substance: TRASTUZUMAB
     Route: 065
  5. TRASTUZUMAB [Suspect]
     Active Substance: TRASTUZUMAB
     Route: 065
  6. TRASTUZUMAB [Suspect]
     Active Substance: TRASTUZUMAB
     Route: 065
  7. TRASTUZUMAB [Suspect]
     Active Substance: TRASTUZUMAB
     Route: 065
  8. NEULASTA [Suspect]
     Active Substance: PEGFILGRASTIM
     Indication: Supportive care
     Route: 058
  9. NEULASTA [Suspect]
     Active Substance: PEGFILGRASTIM
     Route: 058
  10. NEULASTA [Suspect]
     Active Substance: PEGFILGRASTIM
     Route: 058
  11. NEULASTA [Suspect]
     Active Substance: PEGFILGRASTIM
     Route: 058
  12. NEUPOGEN [Suspect]
     Active Substance: FILGRASTIM
     Indication: Supportive care
     Route: 042
  13. NEUPOGEN [Suspect]
     Active Substance: FILGRASTIM
     Route: 048
  14. NEUPOGEN [Suspect]
     Active Substance: FILGRASTIM
     Route: 065
  15. NEUPOGEN [Suspect]
     Active Substance: FILGRASTIM
     Route: 048
  16. ACETAMINOPHEN\CODEINE PHOSPHATE [Suspect]
     Active Substance: ACETAMINOPHEN\CODEINE PHOSPHATE
     Indication: Tardive dyskinesia
     Route: 065
  17. ACETAMINOPHEN\CODEINE PHOSPHATE [Suspect]
     Active Substance: ACETAMINOPHEN\CODEINE PHOSPHATE
     Route: 065
  18. ACETAMINOPHEN\CODEINE PHOSPHATE [Suspect]
     Active Substance: ACETAMINOPHEN\CODEINE PHOSPHATE
     Route: 065
  19. BETAMETHASONE [Suspect]
     Active Substance: BETAMETHASONE\BETAMETHASONE DIPROPIONATE
     Indication: Tardive dyskinesia
     Route: 048
  20. BETAMETHASONE [Suspect]
     Active Substance: BETAMETHASONE\BETAMETHASONE DIPROPIONATE
     Route: 065
  21. BETAMETHASONE [Suspect]
     Active Substance: BETAMETHASONE\BETAMETHASONE DIPROPIONATE
     Route: 048
  22. BETAMETHASONE [Suspect]
     Active Substance: BETAMETHASONE\BETAMETHASONE DIPROPIONATE
     Route: 065
  23. ENOXAPARIN [Suspect]
     Active Substance: ENOXAPARIN
     Indication: Tardive dyskinesia
     Route: 058
  24. ENOXAPARIN [Suspect]
     Active Substance: ENOXAPARIN
     Route: 058
  25. LEVOFLOXACIN [Suspect]
     Active Substance: LEVOFLOXACIN
     Indication: Tardive dyskinesia
     Route: 048
  26. LEVOFLOXACIN [Suspect]
     Active Substance: LEVOFLOXACIN
     Route: 048
  27. LEVOFLOXACIN [Suspect]
     Active Substance: LEVOFLOXACIN
     Route: 048
  28. LORAZEPAM [Suspect]
     Active Substance: LORAZEPAM
     Indication: Tardive dyskinesia
     Route: 048
  29. LORAZEPAM [Suspect]
     Active Substance: LORAZEPAM
     Route: 048
  30. LORAZEPAM [Suspect]
     Active Substance: LORAZEPAM
     Route: 048
  31. LORAZEPAM [Suspect]
     Active Substance: LORAZEPAM
     Route: 048
  32. LORAZEPAM [Suspect]
     Active Substance: LORAZEPAM
     Route: 048
  33. METOCLOPRAMIDE [Suspect]
     Active Substance: METOCLOPRAMIDE
     Indication: Tardive dyskinesia
     Route: 048
  34. METOCLOPRAMIDE [Suspect]
     Active Substance: METOCLOPRAMIDE
     Route: 048
  35. METOCLOPRAMIDE [Suspect]
     Active Substance: METOCLOPRAMIDE
     Route: 048
  36. CYCLOPHOSPHAMIDE [Suspect]
     Active Substance: CYCLOPHOSPHAMIDE
     Indication: Tardive dyskinesia
     Route: 042
  37. CYCLOPHOSPHAMIDE [Suspect]
     Active Substance: CYCLOPHOSPHAMIDE
     Indication: Breast cancer
     Route: 065
  38. CYCLOPHOSPHAMIDE [Suspect]
     Active Substance: CYCLOPHOSPHAMIDE
     Route: 042
  39. RANITIDINE HYDROCHLORIDE [Suspect]
     Active Substance: RANITIDINE HYDROCHLORIDE
     Indication: Tardive dyskinesia
     Route: 048
  40. RANITIDINE HYDROCHLORIDE [Suspect]
     Active Substance: RANITIDINE HYDROCHLORIDE
     Route: 048
  41. RANITIDINE HYDROCHLORIDE [Suspect]
     Active Substance: RANITIDINE HYDROCHLORIDE
     Route: 048
  42. RANITIDINE HYDROCHLORIDE [Suspect]
     Active Substance: RANITIDINE HYDROCHLORIDE
     Route: 048
  43. DEXAMETHASONE [Suspect]
     Active Substance: DEXAMETHASONE
     Indication: Supportive care
     Route: 048
  44. DEXAMETHASONE [Suspect]
     Active Substance: DEXAMETHASONE
     Route: 048
  45. EMEND [Suspect]
     Active Substance: APREPITANT
     Indication: Supportive care
     Route: 048
  46. EMEND [Suspect]
     Active Substance: APREPITANT
     Route: 048
  47. EMEND [Suspect]
     Active Substance: APREPITANT
     Route: 048
  48. EMEND [Suspect]
     Active Substance: APREPITANT
     Route: 048
  49. EMEND [Suspect]
     Active Substance: APREPITANT
     Route: 048
  50. PACLITAXEL [Suspect]
     Active Substance: PACLITAXEL
     Indication: Supportive care
     Route: 042
  51. PACLITAXEL [Suspect]
     Active Substance: PACLITAXEL
     Indication: Breast cancer
     Route: 042
  52. PACLITAXEL [Suspect]
     Active Substance: PACLITAXEL
     Route: 042
  53. PACLITAXEL [Suspect]
     Active Substance: PACLITAXEL
     Route: 042
  54. PACLITAXEL [Suspect]
     Active Substance: PACLITAXEL
     Route: 042
  55. DOXORUBICIN [Suspect]
     Active Substance: DOXORUBICIN
     Indication: Breast cancer
     Route: 042
  56. DOXORUBICIN [Suspect]
     Active Substance: DOXORUBICIN
     Route: 042
  57. DOXORUBICIN [Suspect]
     Active Substance: DOXORUBICIN
     Route: 042
  58. ONDANSETRON [Suspect]
     Active Substance: ONDANSETRON
     Indication: Supportive care
     Route: 048
  59. ONDANSETRON [Suspect]
     Active Substance: ONDANSETRON
     Route: 048
  60. ONDANSETRON [Suspect]
     Active Substance: ONDANSETRON
     Route: 065
  61. ONDANSETRON [Suspect]
     Active Substance: ONDANSETRON
     Route: 048
  62. ONDANSETRON [Suspect]
     Active Substance: ONDANSETRON
     Route: 048
  63. ACETAMINOPHEN [Suspect]
     Active Substance: ACETAMINOPHEN
     Indication: Tardive dyskinesia
     Route: 065
  64. EMEND [Suspect]
     Active Substance: APREPITANT
     Indication: Supportive care
     Route: 048
  65. EMEND [Suspect]
     Active Substance: APREPITANT
     Route: 048
  66. NEULASTA [Suspect]
     Active Substance: PEGFILGRASTIM
     Indication: Supportive care
     Route: 058
  67. NEUPOGEN [Suspect]
     Active Substance: FILGRASTIM
     Indication: Supportive care
     Route: 048
  68. NEUPOGEN [Suspect]
     Active Substance: FILGRASTIM
     Route: 065
  69. NEUPOGEN [Suspect]
     Active Substance: FILGRASTIM
     Route: 048

REACTIONS (12)
  - Atelectasis [Recovered/Resolved]
  - Computerised tomogram thorax [Recovered/Resolved]
  - Computerised tomogram thorax abnormal [Recovered/Resolved]
  - Cough [Recovered/Resolved]
  - Dyspnoea [Recovered/Resolved]
  - Fatigue [Recovered/Resolved]
  - Gastrointestinal disorder [Recovered/Resolved]
  - Hypoxia [Recovered/Resolved]
  - Nausea [Recovered/Resolved]
  - Off label use [Unknown]
  - Pyrexia [Recovered/Resolved]
  - Rash [Recovered/Resolved]
